FAERS Safety Report 10618932 (Version 1)
Quarter: 2014Q4

REPORT INFORMATION
  Report Type: Spontaneous
  Country: DK (occurrence: None)
  Receive Date: 20141126
  Receipt Date: 20141126
  Transmission Date: 20150529
  Serious: Yes (Life-Threatening, Hospitalization)
  Sender: FDA-Public Use
  Company Number: IPC201411-000614

PATIENT
  Age: 84 Year
  Sex: Female

DRUGS (1)
  1. WARFARIN (WARFARIN) (WARFARIN) [Suspect]
     Active Substance: WARFARIN
     Indication: PULMONARY EMBOLISM
     Dosage: STOPPED

REACTIONS (10)
  - Fall [None]
  - Leukocytosis [None]
  - Chest injury [None]
  - Face injury [None]
  - Oesophageal disorder [None]
  - Tachycardia [None]
  - Oesophageal perforation [None]
  - Blood albumin decreased [None]
  - Haematoma [None]
  - Acidosis [None]
